FAERS Safety Report 4490507-3 (Version None)
Quarter: 2004Q4

REPORT INFORMATION
  Report Type: 
  Country: None (occurrence: None)
  Receive Date: 20041028
  Receipt Date: 20041014
  Transmission Date: 20050328
  Serious: No
  Sender: FDA-Public Use
  Company Number: 209660

PATIENT
  Age: 26 Year
  Sex: Female
  Weight: 96 kg

DRUGS (1)
  1. RITUXAN [Suspect]
     Indication: SJOGREN'S SYNDROME
     Dosage: 800 MG 1/WEEK, INTRAVENOUS
     Route: 042
     Dates: start: 20040621, end: 20040705

REACTIONS (6)
  - ARTHRITIS [None]
  - MYALGIA [None]
  - PAROTID GLAND ENLARGEMENT [None]
  - PAROTITIS [None]
  - PURPURA [None]
  - WHITE BLOOD CELL COUNT DECREASED [None]
